FAERS Safety Report 13276750 (Version 1)
Quarter: 2017Q1

REPORT INFORMATION
  Report Type: Report from Study
  Country: US (occurrence: US)
  Receive Date: 20170228
  Receipt Date: 20170228
  Transmission Date: 20170428
  Serious: Yes (Hospitalization)
  Sender: FDA-Public Use
  Company Number: US-BIOGEN-2017BI00362929

PATIENT
  Age: 46 Year
  Sex: Female

DRUGS (5)
  1. AVONEX [Suspect]
     Active Substance: INTERFERON BETA-1A
     Route: 030
     Dates: start: 20170221
  2. HCTZ [Concomitant]
     Active Substance: HYDROCHLOROTHIAZIDE
     Indication: BLOOD PRESSURE MEASUREMENT
     Route: 065
  3. LISINOPRIL. [Concomitant]
     Active Substance: LISINOPRIL
     Indication: BLOOD PRESSURE MEASUREMENT
     Route: 065
  4. LASIX [Concomitant]
     Active Substance: FUROSEMIDE
     Indication: BLOOD PRESSURE MEASUREMENT
     Route: 065
  5. AVONEX [Suspect]
     Active Substance: INTERFERON BETA-1A
     Indication: MULTIPLE SCLEROSIS
     Route: 030
     Dates: start: 20170214

REACTIONS (1)
  - Hypotension [Recovered/Resolved]

NARRATIVE: CASE EVENT DATE: 20170219
